FAERS Safety Report 8622316-5 (Version None)
Quarter: 2012Q3

REPORT INFORMATION
  Report Type: 
  Country: None (occurrence: None)
  Receive Date: 20120827
  Receipt Date: 20120817
  Transmission Date: 20120928
  Serious: Yes (Hospitalization)
  Sender: FDA-Public Use
  Company Number: US-BIOGENIDEC-2012BI009565

PATIENT
  Age: 58 Year
  Sex: Female
  Weight: 71 kg

DRUGS (15)
  1. AVONEX [Suspect]
     Route: 030
     Dates: start: 20081024, end: 20101130
  2. ZOLOFT [Concomitant]
     Indication: DEPRESSION
  3. AVONEX [Suspect]
     Route: 030
     Dates: start: 20120817
  4. AVONEX [Suspect]
     Indication: MULTIPLE SCLEROSIS
     Route: 030
     Dates: start: 20060608, end: 20060820
  5. METHADONE HCL [Concomitant]
  6. TYSABRI [Concomitant]
     Indication: MULTIPLE SCLEROSIS
     Route: 042
     Dates: start: 20101207, end: 20110202
  7. DORAGESIC (ORPHENADRINE CITRATE, PARACETAMOL) [Concomitant]
     Dates: start: 20070401
  8. DORAGESIC (ORPHENADRINE CITRATE, PARACETAMOL) [Concomitant]
     Dates: start: 20110101
  9. SERTRALINE HYDROCHLORIDE [Concomitant]
  10. AMPYRA [Concomitant]
     Indication: GAIT DISTURBANCE
     Route: 048
     Dates: start: 20110601
  11. AVONEX [Suspect]
     Route: 030
  12. PRIMIDONE [Concomitant]
  13. TIZANIDINE HYDROCHLORIDE [Concomitant]
  14. AVONEX [Suspect]
     Route: 030
     Dates: start: 20110101
  15. GABAPENTIN [Concomitant]
     Dates: start: 20050901

REACTIONS (16)
  - SMALL INTESTINAL OBSTRUCTION [None]
  - LIVER FUNCTION TEST ABNORMAL [None]
  - MULTIPLE SCLEROSIS RELAPSE [None]
  - RENAL FAILURE ACUTE [None]
  - HEPATOMEGALY [None]
  - HEADACHE [None]
  - PAIN [None]
  - BILIARY TRACT OPERATION [None]
  - DEPRESSION [None]
  - ASTHENIA [None]
  - PNEUMONIA [None]
  - MUSCLE SPASMS [None]
  - ABDOMINAL PAIN [None]
  - POST PROCEDURAL COMPLICATION [None]
  - URINARY TRACT INFECTION [None]
  - PANCREATITIS ACUTE [None]
